FAERS Safety Report 24448805 (Version 1)
Quarter: 2024Q4

REPORT INFORMATION
  Report Type: Spontaneous
  Country: CN (occurrence: CN)
  Receive Date: 20241017
  Receipt Date: 20241017
  Transmission Date: 20250115
  Serious: Yes (Life-Threatening, Hospitalization)
  Sender: ACCORD
  Company Number: CN-Accord-451285

PATIENT
  Age: 54 Year
  Sex: Female

DRUGS (3)
  1. TACROLIMUS [Suspect]
     Active Substance: TACROLIMUS
     Indication: Immunosuppressant drug therapy
     Dates: start: 202207, end: 202208
  2. MYCOPHENOLIC ACID [Concomitant]
     Active Substance: MYCOPHENOLIC ACID
     Indication: Immunosuppressant drug therapy
     Dates: start: 202207
  3. METHYLPREDNISOLONE [Concomitant]
     Active Substance: METHYLPREDNISOLONE
     Indication: Immunosuppressant drug therapy
     Dates: start: 202207

REACTIONS (3)
  - Posterior reversible encephalopathy syndrome [Recovered/Resolved]
  - Subdural haemorrhage [Recovered/Resolved]
  - Hypoxia [Recovered/Resolved]

NARRATIVE: CASE EVENT DATE: 20220722
